FAERS Safety Report 20841955 (Version 1)
Quarter: 2022Q2

REPORT INFORMATION
  Report Type: Spontaneous
  Country: US (occurrence: US)
  Receive Date: 20220518
  Receipt Date: 20220518
  Transmission Date: 20220721
  Serious: No
  Sender: FDA-Public Use
  Company Number: US-PCCINC-2022-PEL-000195

PATIENT

DRUGS (2)
  1. GABLOFEN [Suspect]
     Active Substance: BACLOFEN
     Indication: Muscle spasticity
     Dosage: 142.3 MICROGRAM/DAY
     Route: 037
  2. GABLOFEN [Suspect]
     Active Substance: BACLOFEN
     Dosage: 129.3 MCG/DAY
     Route: 037

REACTIONS (1)
  - Drug withdrawal syndrome [Recovered/Resolved]
